FAERS Safety Report 4751781-9 (Version None)
Quarter: 2005Q3

REPORT INFORMATION
  Report Type: 
  Country: None (occurrence: None)
  Receive Date: 20050818
  Receipt Date: 20040713
  Transmission Date: 20060218
  Serious: Yes (Death)
  Sender: FDA-Public Use
  Company Number: 366103

PATIENT
  Age: 53 Year
  Sex: Female

DRUGS (1)
  1. CYTOVENE [Suspect]
     Indication: CYTOMEGALOVIRUS INFECTION
     Dosage: ORAL
     Route: 048
     Dates: start: 20010615, end: 20040315

REACTIONS (2)
  - CYTOMEGALOVIRUS INFECTION [None]
  - DISEASE PROGRESSION [None]
